FAERS Safety Report 9004093 (Version 2)
Quarter: 2013Q1

REPORT INFORMATION
  Report Type: Spontaneous
  Country: US (occurrence: US)
  Receive Date: 20130109
  Receipt Date: 20130329
  Transmission Date: 20140127
  Serious: No
  Sender: FDA-Public Use
  Company Number: US-BIOGENIDEC-2013BI000290

PATIENT
  Sex: Male

DRUGS (1)
  1. TYSABRI [Suspect]
     Indication: MULTIPLE SCLEROSIS
     Route: 042
     Dates: start: 20121107

REACTIONS (9)
  - Gait disturbance [Not Recovered/Not Resolved]
  - Depressed mood [Not Recovered/Not Resolved]
  - Cognitive disorder [Unknown]
  - Apathy [Unknown]
  - Local swelling [Unknown]
  - Muscle spasms [Recovered/Resolved]
  - Skin irritation [Not Recovered/Not Resolved]
  - Malaise [Unknown]
  - Pruritus [Not Recovered/Not Resolved]
